FAERS Safety Report 5479978-3 (Version None)
Quarter: 2007Q4

REPORT INFORMATION
  Report Type: 
  Country: None (occurrence: None)
  Receive Date: 20071008
  Receipt Date: 20071004
  Transmission Date: 20080405
  Serious: Yes (Other)
  Sender: FDA-Public Use
  Company Number: GB-MERCK-0710GBR00030

PATIENT
  Age: 35 Year
  Sex: Female

DRUGS (5)
  1. INVANZ [Suspect]
     Indication: SEPSIS
     Route: 042
     Dates: start: 20070901, end: 20070101
  2. INVANZ [Suspect]
     Indication: GENITAL INFECTION FEMALE
     Route: 042
     Dates: start: 20070901, end: 20070101
  3. SERTRALINE HYDROCHLORIDE [Concomitant]
     Route: 065
  4. REBOXETINE [Concomitant]
     Route: 065
  5. TEICOPLANIN [Concomitant]
     Route: 065

REACTIONS (1)
  - ALOPECIA [None]
